FAERS Safety Report 8334021-3 (Version None)
Quarter: 2012Q2

REPORT INFORMATION
  Report Type: 
  Country: None (occurrence: None)
  Receive Date: 20120503
  Receipt Date: 20120426
  Transmission Date: 20120825
  Serious: Yes (Hospitalization, Other)
  Sender: FDA-Public Use
  Company Number: DE-ROCHE-1052983

PATIENT
  Sex: Female
  Weight: 90 kg

DRUGS (1)
  1. MABTHERA [Suspect]
     Indication: POLYARTHRITIS
     Route: 042
     Dates: start: 20100930, end: 20111222

REACTIONS (1)
  - DEPRESSION [None]
